FAERS Safety Report 21558816 (Version 3)
Quarter: 2023Q1

REPORT INFORMATION
  Report Type: Spontaneous
  Country: ZA (occurrence: ZA)
  Receive Date: 20221107
  Receipt Date: 20230116
  Transmission Date: 20230418
  Serious: Yes (Other)
  Sender: FDA-Public Use
  Company Number: ZA-CIPLA LTD.-2022ZA06478

PATIENT
  Age: 87 Year
  Sex: Female

DRUGS (2)
  1. WARFARIN [Suspect]
     Active Substance: WARFARIN
     Indication: Product used for unknown indication
     Dosage: 2.5 MG (HALF TABLET), UNK
     Route: 065
  2. WARFARIN [Suspect]
     Active Substance: WARFARIN
     Dosage: 2.5 MG (HALF TABLET), UNK
     Route: 065

REACTIONS (3)
  - Foreign body in throat [Unknown]
  - Product physical issue [Unknown]
  - Product use complaint [Unknown]
